FAERS Safety Report 21084770 (Version 2)
Quarter: 2022Q3

REPORT INFORMATION
  Report Type: Spontaneous
  Country: DE (occurrence: DE)
  Receive Date: 20220714
  Receipt Date: 20220728
  Transmission Date: 20221027
  Serious: Yes (Other)
  Sender: FDA-Public Use
  Company Number: DE-TEVA-2022-DE-2053852

PATIENT
  Age: 42 Year
  Sex: Male

DRUGS (11)
  1. HALOPERIDOL [Suspect]
     Active Substance: HALOPERIDOL
     Indication: Schizophrenia
     Route: 065
     Dates: start: 2021
  2. LORAZEPAM [Suspect]
     Active Substance: LORAZEPAM
     Indication: Schizophrenia
     Route: 065
     Dates: start: 2021, end: 2021
  3. PROTHIPENDYL [Suspect]
     Active Substance: PROTHIPENDYL
     Indication: Schizophrenia
     Route: 065
     Dates: start: 2021, end: 2021
  4. CLOZAPINE [Interacting]
     Active Substance: CLOZAPINE
     Indication: Schizophrenia
     Route: 065
     Dates: start: 20210518
  5. CLOZAPINE [Interacting]
     Active Substance: CLOZAPINE
     Route: 065
     Dates: start: 20210525
  6. CLOZAPINE [Interacting]
     Active Substance: CLOZAPINE
     Route: 065
     Dates: start: 20210530, end: 20210531
  7. CLOZAPINE [Interacting]
     Active Substance: CLOZAPINE
     Route: 065
     Dates: start: 20210601
  8. CLOZAPINE [Interacting]
     Active Substance: CLOZAPINE
     Route: 065
     Dates: start: 20210504
  9. CLOZAPINE [Interacting]
     Active Substance: CLOZAPINE
     Route: 065
     Dates: start: 20210606
  10. SPIKEVAX [Interacting]
     Active Substance: ELASOMERAN
     Indication: COVID-19 immunisation
     Dosage: FIRST DOSE OF VACCINE
     Route: 065
     Dates: start: 20210413
  11. SPIKEVAX [Interacting]
     Active Substance: ELASOMERAN
     Dosage: SECOND DOSE OF VACCINE
     Route: 065
     Dates: start: 20210525

REACTIONS (7)
  - Schizophrenia [Recovered/Resolved]
  - Drug interaction [Recovering/Resolving]
  - Antipsychotic drug level increased [Recovering/Resolving]
  - Drug hypersensitivity [Not Recovered/Not Resolved]
  - Tachycardia [Recovered/Resolved]
  - Hypotension [Unknown]
  - Therapy non-responder [Unknown]

NARRATIVE: CASE EVENT DATE: 20210101
